FAERS Safety Report 25307460 (Version 1)
Quarter: 2025Q2

REPORT INFORMATION
  Report Type: Spontaneous
  Country: CN (occurrence: CN)
  Receive Date: 20250513
  Receipt Date: 20250513
  Transmission Date: 20250716
  Serious: Yes (Hospitalization, Other)
  Sender: MYLAN
  Company Number: CN-MYLANLABS-2025M1039733

PATIENT
  Age: 15 Year
  Sex: Male
  Weight: 105 kg

DRUGS (1)
  1. SERTRALINE [Suspect]
     Active Substance: SERTRALINE HYDROCHLORIDE
     Indication: Depression
     Dates: start: 20230422, end: 20230422

REACTIONS (4)
  - Epilepsy [Recovering/Resolving]
  - Drug-induced liver injury [Recovering/Resolving]
  - Intentional overdose [Recovering/Resolving]
  - Toxicity to various agents [Unknown]

NARRATIVE: CASE EVENT DATE: 20230422
